FAERS Safety Report 20654301 (Version 1)
Quarter: 2022Q1

REPORT INFORMATION
  Report Type: Report from Study
  Country: US (occurrence: US)
  Receive Date: 20220330
  Receipt Date: 20220330
  Transmission Date: 20220424
  Serious: Yes (Other)
  Sender: FDA-Public Use
  Company Number: US-BAUSCH-BL-2022-005130

PATIENT
  Age: 70 Year
  Sex: Male
  Weight: 121.67 kg

DRUGS (20)
  1. XIFAXAN [Suspect]
     Active Substance: RIFAXIMIN
     Indication: Hepatic cirrhosis
     Dosage: TAKE 1 TABLET BY MOUTH TWICE DAILY
     Route: 048
     Dates: start: 20181111
  2. LACTULOSE [Concomitant]
     Active Substance: LACTULOSE
     Indication: Hepatic cirrhosis
     Dosage: 10 GRAM/15 ML 30 ML BY MOUTH DAILY
     Route: 048
  3. LACTULOSE [Concomitant]
     Active Substance: LACTULOSE
     Dosage: AVERAGES 2TO 3 BOWEL MOVEMENTS PER DAY
  4. LASIX [Concomitant]
     Active Substance: FUROSEMIDE
     Indication: Product used for unknown indication
  5. LASIX [Concomitant]
     Active Substance: FUROSEMIDE
     Dosage: TAKE 1 TABLET BY MOUTH ONCE A DAY
     Route: 048
  6. SPIRONOLACTONE [Concomitant]
     Active Substance: SPIRONOLACTONE
     Indication: Product used for unknown indication
     Dates: start: 20180603, end: 20210805
  7. SPIRONOLACTONE [Concomitant]
     Active Substance: SPIRONOLACTONE
     Dosage: 50 MG TAKE I TABLET BY MOUTH ONCE A DAY
     Route: 048
  8. MIDODRINE [Concomitant]
     Active Substance: MIDODRINE
     Indication: Product used for unknown indication
     Dosage: 10 MG TAKE 1 TABLET BY MOUTH THREE TIMES A DAY
     Route: 048
  9. ALLOPURINOL [Concomitant]
     Active Substance: ALLOPURINOL
     Indication: Product used for unknown indication
     Dosage: TAKE 2 TABLETS BY MOUTH ONCE A DAY
     Route: 048
  10. GLIPIZIDE [Concomitant]
     Active Substance: GLIPIZIDE
     Indication: Product used for unknown indication
     Dosage: 10 MG TAKE I TABLET BY MOUTH TWICE A DAY
     Route: 048
  11. JARDIANCE [Concomitant]
     Active Substance: EMPAGLIFLOZIN
     Indication: Product used for unknown indication
     Dosage: 10 MG TAKE I TABLET BY MOUTH ONCE A DAY
     Route: 048
  12. MAGNESIUM OXIDE [Concomitant]
     Active Substance: MAGNESIUM OXIDE
     Indication: Product used for unknown indication
     Dosage: 400 MG TAKE 1 TABLET BY MOUTH ONCE A DAY
     Route: 048
  13. PANTOPRAZOLE [Concomitant]
     Active Substance: PANTOPRAZOLE
     Indication: Product used for unknown indication
     Dosage: 40 MG TAKE 1 TABLET BY MOUTH EVERY MORNING 30 MIN BEFORE FIRST MEAL
     Route: 048
  14. INFLUENZA VIRUS VACCINE [Concomitant]
     Active Substance: INFLUENZA VIRUS VACCINE
     Indication: Product used for unknown indication
     Dates: start: 20201030
  15. INFLUENZA VIRUS VACCINE [Concomitant]
     Active Substance: INFLUENZA VIRUS VACCINE
     Dates: start: 20100101
  16. INFLUENZA VIRUS VACCINE [Concomitant]
     Active Substance: INFLUENZA VIRUS VACCINE
     Indication: Influenza immunisation
     Dates: start: 201811
  17. PNEUMOCOCCAL POLYSACCHARIDE PPV23 [Concomitant]
     Indication: Product used for unknown indication
     Dates: start: 2017
  18. HEP A [Concomitant]
     Indication: Hepatitis A immunisation
     Dosage: ADULT
     Dates: start: 2008
  19. HEP B [Concomitant]
     Indication: Hepatitis B immunisation
     Dosage: ADULT
     Dates: start: 2008
  20. COVID Vaccine [Concomitant]
     Indication: COVID-19 immunisation
     Dates: start: 202102, end: 202103

REACTIONS (11)
  - Hepatic encephalopathy [Not Recovered/Not Resolved]
  - Cellulitis [Not Recovered/Not Resolved]
  - Pleural effusion [Not Recovered/Not Resolved]
  - Umbilical hernia [Unknown]
  - COVID-19 [Unknown]
  - Anaemia [Unknown]
  - Ascites [Unknown]
  - Insomnia [Unknown]
  - Therapy interrupted [Unknown]
  - Product distribution issue [Unknown]
  - Insurance issue [Unknown]

NARRATIVE: CASE EVENT DATE: 20220220
